FAERS Safety Report 25033191 (Version 3)
Quarter: 2025Q1

REPORT INFORMATION
  Report Type: Spontaneous
  Country: US (occurrence: US)
  Receive Date: 20250303
  Receipt Date: 20250325
  Transmission Date: 20250409
  Serious: Yes (Hospitalization, Other)
  Sender: NOVARTIS
  Company Number: None

PATIENT
  Sex: Female

DRUGS (19)
  1. LETROZOLE [Suspect]
     Active Substance: LETROZOLE
     Indication: HER2 positive breast cancer
     Dosage: 2.5 MG, QD (DAILY)
     Route: 065
     Dates: start: 20230426
  2. TUKYSA [Suspect]
     Active Substance: TUCATINIB
     Indication: HER2 positive breast cancer
     Route: 065
     Dates: start: 20231207
  3. TUKYSA [Suspect]
     Active Substance: TUCATINIB
     Dosage: 250 MG, BID
     Route: 065
     Dates: start: 202404
  4. TUKYSA [Suspect]
     Active Substance: TUCATINIB
     Dosage: 200 MG, BID(150MG TAB + 50 MG TAB)
     Route: 065
     Dates: start: 202405
  5. KADCYLA [Concomitant]
     Active Substance: ADO-TRASTUZUMAB EMTANSINE
     Indication: HER2 positive breast cancer
     Route: 065
     Dates: start: 20221125
  6. KADCYLA [Concomitant]
     Active Substance: ADO-TRASTUZUMAB EMTANSINE
     Route: 065
     Dates: start: 20220916
  7. KADCYLA [Concomitant]
     Active Substance: ADO-TRASTUZUMAB EMTANSINE
     Route: 065
     Dates: start: 20230126
  8. KADCYLA [Concomitant]
     Active Substance: ADO-TRASTUZUMAB EMTANSINE
     Route: 065
     Dates: start: 20230309
  9. KADCYLA [Concomitant]
     Active Substance: ADO-TRASTUZUMAB EMTANSINE
     Route: 065
     Dates: start: 20230604
  10. KADCYLA [Concomitant]
     Active Substance: ADO-TRASTUZUMAB EMTANSINE
     Route: 065
     Dates: start: 20231207
  11. KADCYLA [Concomitant]
     Active Substance: ADO-TRASTUZUMAB EMTANSINE
     Route: 042
     Dates: start: 202406
  12. XELODA [Concomitant]
     Active Substance: CAPECITABINE
     Indication: HER2 positive breast cancer
     Dosage: 1500 MG, BID, (CYCLE 2)
     Route: 065
  13. XELODA [Concomitant]
     Active Substance: CAPECITABINE
     Dosage: 1000 MG, BID
     Route: 065
     Dates: start: 20240118
  14. XELODA [Concomitant]
     Active Substance: CAPECITABINE
     Dosage: 800 MG, BID
     Route: 065
     Dates: start: 202406
  15. XELODA [Concomitant]
     Active Substance: CAPECITABINE
     Dosage: 800MG (500MG TAB +2 150MG TAB) BID BY ONE WEEK FOR CYCLE #19. RECOMMEND ONLY ONE WEEK DOSAGE OF CAPE
     Route: 065
     Dates: start: 202406
  16. PERTUZUMAB [Concomitant]
     Active Substance: PERTUZUMAB
     Indication: HER2 positive breast cancer
     Route: 065
     Dates: end: 202206
  17. PERTUZUMAB [Concomitant]
     Active Substance: PERTUZUMAB
     Route: 065
     Dates: start: 20230604
  18. PERTUZUMAB [Concomitant]
     Active Substance: PERTUZUMAB
     Route: 065
     Dates: start: 20230406
  19. PERTUZUMAB [Concomitant]
     Active Substance: PERTUZUMAB
     Route: 065
     Dates: start: 20230825

REACTIONS (17)
  - Herpes zoster [Unknown]
  - Metastases to central nervous system [Unknown]
  - HER2 positive breast cancer [Unknown]
  - Malignant neoplasm progression [Unknown]
  - Hypokalaemia [Unknown]
  - Diarrhoea [Recovering/Resolving]
  - Dermatitis [Recovered/Resolved]
  - Arthralgia [Unknown]
  - Asthenia [Unknown]
  - Intracranial mass [Unknown]
  - COVID-19 [Unknown]
  - Drug eruption [Unknown]
  - Palmar-plantar erythrodysaesthesia syndrome [Unknown]
  - Myalgia [Unknown]
  - Pain in extremity [Unknown]
  - Dry skin [Unknown]
  - Skin fissures [Unknown]

NARRATIVE: CASE EVENT DATE: 20230808
